FAERS Safety Report 7018642-6 (Version None)
Quarter: 2010Q3

REPORT INFORMATION
  Report Type: 
  Country: None (occurrence: None)
  Receive Date: 20100924
  Receipt Date: 20100913
  Transmission Date: 20110219
  Serious: Yes (Hospitalization)
  Sender: FDA-Public Use
  Company Number: 2010MA002590

PATIENT
  Age: 3 Month
  Sex: Male

DRUGS (5)
  1. HYDROCHLOROTHIAZIDE [Suspect]
     Dosage: 2 MG/KG;QD
  2. INDOMETHACIN [Suspect]
     Dosage: 2 MG/KG;QD
  3. CON MEDS [Concomitant]
  4. DIPHTHERIA AND TETANUS [Concomitant]
  5. TOXOIDS AND PERTUSSIS [Concomitant]

REACTIONS (8)
  - FLUID OVERLOAD [None]
  - HYPONATRAEMIA [None]
  - IMMUNISATION [None]
  - OEDEMA [None]
  - SOMNOLENCE [None]
  - STATUS EPILEPTICUS [None]
  - WATER INTOXICATION [None]
  - WEIGHT INCREASED [None]
